FAERS Safety Report 11045183 (Version 1)
Quarter: 2015Q2

REPORT INFORMATION
  Report Type: Report from Study
  Country: US (occurrence: US)
  Receive Date: 20150417
  Receipt Date: 20150417
  Transmission Date: 20150821
  Serious: Yes (Hospitalization)
  Sender: FDA-Public Use
  Company Number: US-009507513-1504USA011470

PATIENT
  Age: 45 Year
  Sex: Female
  Weight: 115.6 kg

DRUGS (7)
  1. CYTARABINE. [Suspect]
     Active Substance: CYTARABINE
     Indication: ACUTE MYELOID LEUKAEMIA
     Dosage: 500 MG/M2/DAY, CONTINOUS IV INFUSION ON DAYS 4-7, INDUCTION
     Route: 042
     Dates: start: 20141101, end: 20141105
  2. PREDNISONE. [Concomitant]
     Active Substance: PREDNISONE
  3. CYTARABINE. [Suspect]
     Active Substance: CYTARABINE
     Dosage: 1500 MG/M2/DAY, CONTINOUS IV INFUSION ON DAYS 4-7, REINDUCTION
     Route: 042
     Dates: start: 20141207, end: 20141211
  4. IDARUBICIN HYDROCHLORIDE. [Suspect]
     Active Substance: IDARUBICIN HYDROCHLORIDE
     Dosage: 12 MG/M2, QD, OVER 15 MIN ON DAYS 4-6, REINDUCTION
     Route: 042
     Dates: start: 20141207, end: 20141209
  5. VORINOSTAT [Suspect]
     Active Substance: VORINOSTAT
     Indication: ACUTE MYELOID LEUKAEMIA
     Dosage: 500 MG, TID, (ON DAYS 1-3), INDUCTION
     Route: 048
     Dates: start: 20141029, end: 20141031
  6. VORINOSTAT [Suspect]
     Active Substance: VORINOSTAT
     Dosage: 500 MG, TID, (ON DAYS 1-3), RE-INDUCTION
     Route: 048
     Dates: start: 20141204, end: 20141207
  7. IDARUBICIN HYDROCHLORIDE. [Suspect]
     Active Substance: IDARUBICIN HYDROCHLORIDE
     Indication: ACUTE MYELOID LEUKAEMIA
     Dosage: 12 MG/M2, QD, OVER 15 MIN ON DAYS 4-6, INDUCTION
     Route: 042
     Dates: start: 20141101, end: 20141103

REACTIONS (7)
  - Febrile neutropenia [Recovered/Resolved]
  - Upper respiratory tract infection [Recovered/Resolved]
  - Pulmonary embolism [Recovered/Resolved]
  - Pericardial effusion [Recovered/Resolved]
  - Pleural effusion [Recovered/Resolved]
  - Infection [Recovered/Resolved]
  - Colitis [Recovered/Resolved]

NARRATIVE: CASE EVENT DATE: 20141108
